FAERS Safety Report 24735625 (Version 1)
Quarter: 2024Q4

REPORT INFORMATION
  Report Type: Spontaneous
  Country: RO (occurrence: RO)
  Receive Date: 20241216
  Receipt Date: 20241216
  Transmission Date: 20250114
  Serious: Yes (Hospitalization, Other)
  Sender: ABBVIE
  Company Number: RO-ABBVIE-6038941

PATIENT
  Age: 83 Year
  Sex: Female

DRUGS (3)
  1. VENETOCLAX [Suspect]
     Active Substance: VENETOCLAX
     Indication: Product used for unknown indication
     Dosage: 100MG/DAY DAY 1, 200MG/DAY DAY 2, THEN 400MG/DAY}28 DAYS
     Route: 048
     Dates: start: 20240319
  2. AZACITIDINE [Concomitant]
     Active Substance: AZACITIDINE
     Indication: Product used for unknown indication
     Dosage: 75 MG/M2
     Dates: start: 20240227
  3. HYDREA [Concomitant]
     Active Substance: HYDROXYUREA
     Indication: Product used for unknown indication

REACTIONS (7)
  - Melaena [Unknown]
  - Gastrointestinal angiodysplasia [Unknown]
  - Upper gastrointestinal haemorrhage [Unknown]
  - Neutropenia [Unknown]
  - Acute monocytic leukaemia [Unknown]
  - Thrombocytopenia [Unknown]
  - Iron deficiency anaemia [Unknown]

NARRATIVE: CASE EVENT DATE: 20240721
